FAERS Safety Report 23977978 (Version 1)
Quarter: 2024Q2

REPORT INFORMATION
  Report Type: Spontaneous
  Country: JP (occurrence: JP)
  Receive Date: 20240614
  Receipt Date: 20240614
  Transmission Date: 20240717
  Serious: Yes (Death, Hospitalization, Other)
  Sender: FDA-Public Use
  Company Number: JP-JNJFOC-20230969468

PATIENT

DRUGS (1)
  1. REMICADE [Suspect]
     Active Substance: INFLIXIMAB
     Indication: Product used for unknown indication
     Route: 041

REACTIONS (11)
  - Gastric cancer [Fatal]
  - Megacolon [Unknown]
  - Crohn^s disease [Unknown]
  - Colitis ulcerative [Unknown]
  - Proctocolectomy [Unknown]
  - Respiratory disorder [Unknown]
  - Herpes zoster [Unknown]
  - Infusion related reaction [Unknown]
  - Platelet count decreased [Unknown]
  - COVID-19 [Unknown]
  - Drug ineffective [Unknown]
